FAERS Safety Report 20916850 (Version 1)
Quarter: 2022Q2

REPORT INFORMATION
  Report Type: Spontaneous
  Country: JP (occurrence: JP)
  Receive Date: 20220605
  Receipt Date: 20220605
  Transmission Date: 20220720
  Serious: Yes (Death, Other)
  Sender: FDA-Public Use
  Company Number: JP-BRISTOL-MYERS SQUIBB COMPANY-2022-050271

PATIENT
  Age: 70 Year
  Sex: Male

DRUGS (3)
  1. VIDAZA [Suspect]
     Active Substance: AZACITIDINE
     Indication: Myelodysplastic syndrome
     Route: 065
     Dates: start: 202007, end: 202107
  2. VENETOCLAX [Concomitant]
     Active Substance: VENETOCLAX
     Indication: Product used for unknown indication
     Route: 065
     Dates: start: 202108, end: 202108
  3. VENETOCLAX [Concomitant]
     Active Substance: VENETOCLAX
     Route: 065
     Dates: start: 202109

REACTIONS (1)
  - Death [Fatal]
